FAERS Safety Report 18165862 (Version 1)
Quarter: 2020Q3

REPORT INFORMATION
  Report Type: Spontaneous
  Country: US (occurrence: US)
  Receive Date: 20200819
  Receipt Date: 20200819
  Transmission Date: 20201103
  Serious: No
  Sender: FDA-Public Use
  Company Number: US-BAUSCH-BL-2020-022306

PATIENT
  Age: 85 Year
  Sex: Male

DRUGS (1)
  1. EFUDEX [Suspect]
     Active Substance: FLUOROURACIL
     Indication: SKIN CANCER
     Dosage: ONCE DAILY AND SOMETIMES TWICE DAILY
     Route: 061
     Dates: start: 202007, end: 20200802

REACTIONS (11)
  - Skin burning sensation [Recovering/Resolving]
  - Nasal ulcer [Recovering/Resolving]
  - Pruritus [Recovering/Resolving]
  - Erythema [Not Recovered/Not Resolved]
  - Eye ulcer [Recovering/Resolving]
  - Thermal burn [Recovering/Resolving]
  - Cheilitis [Recovering/Resolving]
  - Skin ulcer [Recovering/Resolving]
  - Burns first degree [Recovering/Resolving]
  - Rash macular [Recovering/Resolving]
  - Eye swelling [Not Recovered/Not Resolved]

NARRATIVE: CASE EVENT DATE: 202007
